FAERS Safety Report 6174374-8 (Version None)
Quarter: 2009Q2

REPORT INFORMATION
  Report Type: 
  Country: None (occurrence: None)
  Receive Date: 20090430
  Receipt Date: 20090415
  Transmission Date: 20091009
  Serious: Yes (Hospitalization)
  Sender: FDA-Public Use
  Company Number: CN-GENENTECH-281439

PATIENT
  Sex: Male

DRUGS (6)
  1. BEVACIZUMAB [Suspect]
     Indication: COLON CANCER
     Dosage: 7.5 MG/KG, Q3W
     Route: 042
     Dates: start: 20060916
  2. CAPECITABINE [Suspect]
     Indication: COLON CANCER
     Dosage: 1000 MG/M2, Q2W
     Route: 048
     Dates: start: 20060916
  3. OXALIPLATIN [Suspect]
     Indication: COLON CANCER
     Dosage: 130 MG/M2, Q3W
     Route: 042
     Dates: start: 20060916
  4. BENAZEPRIL HYDROCHLORIDE [Concomitant]
     Indication: DRUG USE FOR UNKNOWN INDICATION
  5. GLICLAZIDE [Concomitant]
     Indication: DRUG USE FOR UNKNOWN INDICATION
  6. BENAZEPRIL HYDROCHLORIDE [Concomitant]

REACTIONS (2)
  - ACUTE MYOCARDIAL INFARCTION [None]
  - CORONARY ARTERY DISEASE [None]
